FAERS Safety Report 18013713 (Version 1)
Quarter: 2020Q3

REPORT INFORMATION
  Report Type: Spontaneous
  Country: CH (occurrence: CH)
  Receive Date: 20200713
  Receipt Date: 20200713
  Transmission Date: 20201103
  Serious: Yes (Other)
  Sender: FDA-Public Use
  Company Number: CH-CHEPLA-C20202018

PATIENT
  Age: 70 Year
  Sex: Female
  Weight: 44 kg

DRUGS (12)
  1. TACROLIMUS. [Concomitant]
     Active Substance: TACROLIMUS
     Indication: IMMUNOSUPPRESSION
  2. SULFAMETHOXAZOLE/TRIMETHOPRIM [Concomitant]
     Active Substance: SULFAMETHOXAZOLE\TRIMETHOPRIM
     Indication: PROPHYLAXIS
  3. HEPARIN [Concomitant]
     Active Substance: HEPARIN SODIUM
     Indication: PROPHYLAXIS
     Route: 058
  4. GANCICLOVIR. [Suspect]
     Active Substance: GANCICLOVIR
     Indication: CYTOMEGALOVIRUS OESOPHAGITIS
     Dosage: WAS STARTED AT A REDUCED DOSE 22 MONTHS AFTER TRANSPLANTATION
     Route: 042
  5. PREDNISOLONE. [Concomitant]
     Active Substance: PREDNISOLONE
     Indication: IMMUNOSUPPRESSION
  6. PANTOPROZOLE [Concomitant]
     Active Substance: PANTOPRAZOLE SODIUM
     Dosage: HIGH?DOSE PANTOPRAZOLE
  7. GANCICLOVIR. [Suspect]
     Active Substance: GANCICLOVIR
     Indication: CYTOMEGALOVIRUS OESOPHAGITIS
     Dosage: ELEVEN DAYS AFTER OF GANCICLOVIR [...] RECIEVED OVERDOSE OF GANCICLOVIR WITH A SINGLE DOSE OF 500 MG
  8. ACETYLSALICYLIC ACID [Concomitant]
     Active Substance: ASPIRIN
     Dosage: LOW?DOSE ACETYLSALICYLIC ACID
  9. NEBIVOLOL. [Concomitant]
     Active Substance: NEBIVOLOL
  10. CITALOPRAM [Concomitant]
     Active Substance: CITALOPRAM HYDROBROMIDE
  11. QUETIAPINE. [Concomitant]
     Active Substance: QUETIAPINE
     Dosage: LOW?DOSE QUETIAPINE
  12. CHONDROITIN SULFATE/HYALURONIC ACID [Concomitant]

REACTIONS (2)
  - Leukopenia [Recovered/Resolved]
  - Accidental overdose [Recovered/Resolved]
